FAERS Safety Report 6721037-3 (Version None)
Quarter: 2010Q2

REPORT INFORMATION
  Report Type: 
  Country: None (occurrence: None)
  Receive Date: 20100512
  Receipt Date: 20100430
  Transmission Date: 20101027
  Serious: Yes (Other)
  Sender: FDA-Public Use
  Company Number: GB-BAYER-201024376GPV

PATIENT
  Age: 52 Year
  Sex: Female
  Weight: 68 kg

DRUGS (3)
  1. MIRENA [Suspect]
     Indication: MENORRHAGIA
     Route: 015
     Dates: start: 20100323, end: 20100408
  2. EVOREL [Concomitant]
     Indication: HORMONE REPLACEMENT THERAPY
     Route: 062
     Dates: start: 20090801
  3. EVOREL SEQUI [Concomitant]
     Indication: HORMONE REPLACEMENT THERAPY

REACTIONS (3)
  - HEADACHE [None]
  - MALAISE [None]
  - URTICARIA [None]
